FAERS Safety Report 6477966-1 (Version None)
Quarter: 2009Q4

REPORT INFORMATION
  Report Type: 
  Country: None (occurrence: None)
  Receive Date: 20091207
  Receipt Date: 20091127
  Transmission Date: 20100525
  Serious: Yes (Hospitalization, Other)
  Sender: FDA-Public Use
  Company Number: B0546360A

PATIENT
  Sex: Female
  Weight: 69.5 kg

DRUGS (3)
  1. LAPATINIB [Suspect]
     Indication: BREAST CANCER
     Dosage: 1500MG PER DAY
     Route: 048
     Dates: start: 20081010
  2. PACLITAXEL [Suspect]
     Indication: BREAST CANCER
     Dosage: 175MG EVERY 3 WEEKS
     Route: 042
     Dates: start: 20081010
  3. MYOCET [Suspect]
     Indication: BREAST CANCER
     Dosage: 110.76MG EVERY 3 WEEKS
     Route: 042
     Dates: start: 20081010

REACTIONS (6)
  - DIARRHOEA [None]
  - FEBRILE NEUTROPENIA [None]
  - GASTRITIS [None]
  - GRANULOCYTE COUNT [None]
  - LEUKOPENIA [None]
  - NEUTROPHIL COUNT [None]
